FAERS Safety Report 20053055 (Version 2)
Quarter: 2022Q1

REPORT INFORMATION
  Report Type: Report from Study
  Country: CO (occurrence: CO)
  Receive Date: 20211110
  Receipt Date: 20220315
  Transmission Date: 20220424
  Serious: Yes (Disabling)
  Sender: FDA-Public Use
  Company Number: CO-SA-SAC20211108000020

PATIENT
  Age: 37 Year
  Sex: Male

DRUGS (3)
  1. ALEMTUZUMAB [Suspect]
     Active Substance: ALEMTUZUMAB
     Indication: Multiple sclerosis
     Dosage: UNK UNK, QD
     Route: 042
     Dates: start: 20201228, end: 20201230
  2. ALEMTUZUMAB [Suspect]
     Active Substance: ALEMTUZUMAB
     Dosage: UNK UNK, CYCLICAL, QD
     Route: 042
     Dates: start: 20191209
  3. VIT D [VITAMIN D NOS] [Concomitant]
     Dosage: UNK UNK, QD
     Route: 048

REACTIONS (3)
  - Fall [Recovering/Resolving]
  - Muscular weakness [Recovering/Resolving]
  - Back pain [Recovering/Resolving]

NARRATIVE: CASE EVENT DATE: 20211030
